FAERS Safety Report 4587243-1 (Version None)
Quarter: 2005Q1

REPORT INFORMATION
  Report Type: 
  Country: None (occurrence: None)
  Receive Date: 20050218
  Receipt Date: 20050203
  Transmission Date: 20050727
  Serious: Yes (Disabling)
  Sender: FDA-Public Use
  Company Number: JP-GLAXOSMITHKLINE-B0370223A

PATIENT
  Age: 38 Year
  Sex: Female

DRUGS (9)
  1. PAXIL [Suspect]
     Indication: DEPRESSION
     Route: 048
     Dates: start: 20030902, end: 20050126
  2. DIAZEPAM [Concomitant]
     Indication: PANIC DISORDER
     Dosage: 12MG PER DAY
     Route: 048
     Dates: start: 20040108
  3. SULPIRIDE [Concomitant]
     Indication: DEPRESSION
     Dosage: 150MG PER DAY
     Route: 048
     Dates: start: 20021022
  4. CALMDOWN [Concomitant]
     Indication: PANIC DISORDER
     Dosage: .4MG PER DAY
     Route: 048
     Dates: start: 20021221
  5. ALMARL [Concomitant]
     Indication: PALPITATIONS
     Dosage: 15MG PER DAY
     Route: 048
     Dates: start: 20030902
  6. ZESTROMIN [Concomitant]
     Indication: INSOMNIA
     Dosage: .25MG PER DAY
     Route: 048
     Dates: start: 20021022
  7. COSAICHILL [Concomitant]
     Indication: GASTRITIS
     Dosage: 3G PER DAY
     Route: 048
     Dates: start: 20040803
  8. LENDORMIN [Concomitant]
     Route: 048
  9. VITADAN [Concomitant]
     Indication: SCIATICA
     Route: 048
     Dates: start: 20031201

REACTIONS (3)
  - DRUG WITHDRAWAL SYNDROME [None]
  - FALL [None]
  - VERTIGO [None]
